FAERS Safety Report 21355734 (Version 1)
Quarter: 2022Q3

REPORT INFORMATION
  Report Type: Spontaneous
  Country: US (occurrence: US)
  Receive Date: 20220920
  Receipt Date: 20220920
  Transmission Date: 20221027
  Serious: No
  Sender: FDA-Public Use
  Company Number: US-THERAPEUTICSMD-2022TMD00324

PATIENT
  Sex: Female

DRUGS (1)
  1. ANNOVERA [Suspect]
     Active Substance: ETHINYL ESTRADIOL\SEGESTERONE ACETATE

REACTIONS (2)
  - Bacterial vaginosis [Unknown]
  - Device colour issue [Unknown]
